FAERS Safety Report 5132751-8 (Version None)
Quarter: 2006Q4

REPORT INFORMATION
  Report Type: 
  Country: None (occurrence: None)
  Receive Date: 20061023
  Receipt Date: 20060927
  Transmission Date: 20070319
  Serious: Yes (Hospitalization)
  Sender: FDA-Public Use
  Company Number: GB-BRISTOL-MYERS SQUIBB COMPANY-13524418

PATIENT
  Age: 45 Year
  Sex: Female

DRUGS (7)
  1. KENALOG-40 [Suspect]
     Indication: ECZEMA
     Route: 030
  2. LEVOTHYROXINE SODIUM [Concomitant]
  3. VENTOLIN [Concomitant]
  4. SERETIDE [Concomitant]
  5. LEVOTHYROXINE SODIUM [Concomitant]
     Route: 048
  6. MONTELUKAST [Concomitant]
     Route: 048
  7. CHLORPHENIRAMINE MALEATE [Concomitant]

REACTIONS (1)
  - INJECTION SITE ABSCESS [None]
